FAERS Safety Report 8609454-8 (Version None)
Quarter: 2012Q3

REPORT INFORMATION
  Report Type: 
  Country: None (occurrence: None)
  Receive Date: 20120821
  Receipt Date: 20120814
  Transmission Date: 20120928
  Serious: Yes (Other)
  Sender: FDA-Public Use
  Company Number: MX-PFIZER INC-2012199796

PATIENT
  Sex: Female
  Weight: 71 kg

DRUGS (7)
  1. LYRICA [Suspect]
     Indication: PARAESTHESIA
  2. LYRICA [Suspect]
     Indication: NEUROPATHY PERIPHERAL
     Dosage: 4 CAPSULES OF 150 MG EVERY 8 HOURS
     Route: 048
  3. GABAPENTIN [Suspect]
     Indication: PARAESTHESIA
  4. LYRICA [Suspect]
     Indication: PAIN
  5. GABAPENTIN [Suspect]
     Indication: PAIN
     Dosage: 300 MG, 2X/DAY
     Route: 048
     Dates: end: 20120701
  6. NORVASC [Concomitant]
     Indication: HYPERTENSION
     Dosage: 5 MG, 1X/DAY
     Route: 048
     Dates: start: 20111117
  7. ATACAND [Concomitant]
     Indication: HYPERTENSION
     Dosage: 8 MG, 1X/DAY
     Route: 048
     Dates: start: 19870101

REACTIONS (6)
  - ONYCHOMYCOSIS [None]
  - DRUG INEFFECTIVE [None]
  - OEDEMA PERIPHERAL [None]
  - SWELLING [None]
  - POISONING [None]
  - WEIGHT INCREASED [None]
